FAERS Safety Report 15863531 (Version 1)
Quarter: 2019Q1

REPORT INFORMATION
  Report Type: Spontaneous
  Country: US (occurrence: US)
  Receive Date: 20190124
  Receipt Date: 20190124
  Transmission Date: 20190417
  Serious: Yes (Death)
  Sender: FDA-Public Use
  Company Number: None

PATIENT
  Age: 72 Year
  Sex: Female
  Weight: 65.25 kg

DRUGS (11)
  1. AMITRIPTYLINE [Concomitant]
     Active Substance: AMITRIPTYLINE
  2. CAPECITABINE. [Concomitant]
     Active Substance: CAPECITABINE
  3. METOPROLOL. [Concomitant]
     Active Substance: METOPROLOL
  4. ZUPLENZ [Suspect]
     Active Substance: ONDANSETRON
     Indication: NAUSEA
     Dosage: ?          OTHER FREQUENCY:AS DIRECTED;?
     Route: 060
     Dates: start: 20181221, end: 20190124
  5. PROCHLOROPERAZINE [Concomitant]
     Active Substance: PROCHLORPERAZINE
  6. DRONABINOL. [Concomitant]
     Active Substance: DRONABINOL
  7. LIDOCAINE-PRILOCAINE [Concomitant]
     Active Substance: LIDOCAINE\PRILOCAINE
  8. SIMETHICONE (DIMETHICONE) [Concomitant]
     Active Substance: DIMETHICONE
  9. MORPHINE SULFATE ER [Concomitant]
     Active Substance: MORPHINE SULFATE
  10. FENTANYL. [Concomitant]
     Active Substance: FENTANYL
  11. CREON [Concomitant]
     Active Substance: PANCRELIPASE AMYLASE\PANCRELIPASE LIPASE\PANCRELIPASE PROTEASE

REACTIONS (1)
  - Death [None]
